FAERS Safety Report 5298370-8 (Version None)
Quarter: 2007Q2

REPORT INFORMATION
  Report Type: 
  Country: None (occurrence: None)
  Receive Date: 20070416
  Receipt Date: 20070404
  Transmission Date: 20071010
  Serious: Yes (Death)
  Sender: FDA-Public Use
  Company Number: BR-PFIZER INC-2007025499

PATIENT
  Sex: Male

DRUGS (3)
  1. SUTENT [Suspect]
     Indication: RENAL CELL CARCINOMA STAGE UNSPECIFIED
     Route: 048
     Dates: start: 20060901, end: 20061114
  2. ANLODIPIN [Concomitant]
  3. AMITRIPTYLINE HCL [Concomitant]

REACTIONS (3)
  - DISEASE PROGRESSION [None]
  - PULMONARY HAEMORRHAGE [None]
  - RENAL CELL CARCINOMA STAGE UNSPECIFIED [None]
